FAERS Safety Report 5380877-6 (Version None)
Quarter: 2007Q2

REPORT INFORMATION
  Report Type: 
  Country: None (occurrence: None)
  Receive Date: 20070530
  Receipt Date: 20070222
  Transmission Date: 20071010
  Serious: No
  Sender: FDA-Public Use
  Company Number: 2007PV030553

PATIENT
  Age: 66 Year
  Sex: Male

DRUGS (9)
  1. BYETTA [Suspect]
     Indication: DIABETES MELLITUS NON-INSULIN-DEPENDENT
     Dosage: 5 MCG; BID; SC
     Route: 058
     Dates: start: 20070212
  2. AMARYL [Concomitant]
  3. AVANDIA [Concomitant]
  4. NOVOLIN 70/30 [Concomitant]
  5. HYZAAR [Concomitant]
  6. NORVASC [Concomitant]
  7. LIPITOR [Concomitant]
  8. LASIX [Concomitant]
  9. ASPIRIN [Concomitant]

REACTIONS (6)
  - BLOOD GLUCOSE DECREASED [None]
  - DECREASED APPETITE [None]
  - DIZZINESS [None]
  - MUSCULOSKELETAL PAIN [None]
  - NAUSEA [None]
  - NECK PAIN [None]
